FAERS Safety Report 10758853 (Version 1)
Quarter: 2015Q1

REPORT INFORMATION
  Report Type: Spontaneous
  Country: US (occurrence: US)
  Receive Date: 20150203
  Receipt Date: 20150203
  Transmission Date: 20150721
  Serious: No
  Sender: FDA-Public Use
  Company Number: US-BAYER-2015-015964

PATIENT
  Age: 74 Year
  Sex: Female
  Weight: 65 kg

DRUGS (7)
  1. ALEVE PM [Suspect]
     Active Substance: DIPHENHYDRAMINE HYDROCHLORIDE\NAPROXEN SODIUM
     Indication: ANALGESIC THERAPY
     Dosage: UNK
     Dates: start: 20150129, end: 20150129
  2. ALPRAZOLAM. [Concomitant]
     Active Substance: ALPRAZOLAM
  3. LISINOPRIL. [Concomitant]
     Active Substance: LISINOPRIL
  4. CARVEDILOL. [Concomitant]
     Active Substance: CARVEDILOL
  5. SIMVASTATIN. [Concomitant]
     Active Substance: SIMVASTATIN
  6. ALEVE PM [Suspect]
     Active Substance: DIPHENHYDRAMINE HYDROCHLORIDE\NAPROXEN SODIUM
     Indication: PAIN IN EXTREMITY
  7. OMEPRAZOLE. [Concomitant]
     Active Substance: OMEPRAZOLE

REACTIONS (2)
  - Insomnia [Recovered/Resolved]
  - Drug ineffective [None]

NARRATIVE: CASE EVENT DATE: 20150129
